FAERS Safety Report 7083957-2 (Version None)
Quarter: 2010Q4

REPORT INFORMATION
  Report Type: 
  Country: None (occurrence: None)
  Receive Date: 20101104
  Receipt Date: 20100730
  Transmission Date: 20110411
  Serious: No
  Sender: FDA-Public Use
  Company Number: US-ABBOTT-10P-163-0662205-00

PATIENT
  Sex: Female
  Weight: 104.42 kg

DRUGS (13)
  1. KALETRA [Suspect]
     Indication: HIV INFECTION
     Dosage: 2-200/50MG TWICE A DAY
     Dates: start: 20040124
  2. VIREAD [Suspect]
     Indication: HIV INFECTION
     Dates: start: 20040101
  3. DIDANOSINE [Suspect]
     Indication: HIV INFECTION
     Dates: start: 20040101
  4. FLUCONAZOLE [Concomitant]
     Indication: FUNGAL INFECTION
  5. ALLEGRA [Concomitant]
     Indication: HYPERSENSITIVITY
  6. XANAX [Concomitant]
     Indication: FEELING OF RELAXATION
  7. XANAX [Concomitant]
     Indication: INSOMNIA
  8. ZOLOFT [Concomitant]
     Indication: DEPRESSION
  9. PROPRANOLOL [Concomitant]
     Indication: MIGRAINE
  10. IMITREX [Concomitant]
     Indication: MIGRAINE
  11. BECONASE [Concomitant]
     Indication: HYPERSENSITIVITY
  12. ACYCLOVIR SODIUM [Concomitant]
     Indication: ORAL HERPES
  13. MULTI-VITAMIN [Concomitant]
     Indication: PRODUCT USED FOR UNKNOWN INDICATION

REACTIONS (2)
  - FATIGUE [None]
  - INSOMNIA [None]
